FAERS Safety Report 8818717 (Version 1)
Quarter: 2012Q4

REPORT INFORMATION
  Report Type: Spontaneous
  Country: US (occurrence: None)
  Receive Date: 20121004
  Receipt Date: 20121004
  Transmission Date: 20130627
  Serious: No
  Sender: FDA-Public Use
  Company Number: None

PATIENT
  Sex: Male

DRUGS (1)
  1. DYSPORT [Suspect]
     Indication: SPASMODIC TORTICOLLIS
     Route: 030
     Dates: start: 20120713, end: 20120713

REACTIONS (3)
  - Burning sensation [None]
  - Flushing [None]
  - Injection site pain [None]
